FAERS Safety Report 15344279 (Version 11)
Quarter: 2018Q4

REPORT INFORMATION
  Report Type: Spontaneous
  Country: DE (occurrence: DE)
  Receive Date: 20180903
  Receipt Date: 20181220
  Transmission Date: 20190204
  Serious: Yes (Other)
  Sender: FDA-Public Use
  Company Number: DE-PFIZER INC-2018354172

PATIENT
  Age: 51 Year
  Sex: Male
  Weight: 90 kg

DRUGS (6)
  1. PIPAMPERONE [Suspect]
     Active Substance: PIPAMPERONE
     Dosage: 560 MG, SINGLE (560 MG ONCE/SINGLE) (TOTAL)
     Route: 048
     Dates: start: 20180802, end: 20180802
  2. ALCOHOL. [Suspect]
     Active Substance: ALCOHOL
     Dosage: UNK, SINGLE REPORTED AS MANY LITERS (TOTAL) (ONCE/SINGLE ADMINISTRATION)(TOTAL)
     Route: 048
     Dates: start: 20180802, end: 20180802
  3. RAMIPRIL. [Suspect]
     Active Substance: RAMIPRIL
     Dosage: 30 MG, SINGLE (30 MG ONCE/SINGLE) (TOTAL)
     Route: 048
     Dates: start: 20180802, end: 20180802
  4. METOBETA [Suspect]
     Active Substance: METOPROLOL TARTRATE
     Dosage: 1000 MG, SINGLE (1000 MG ONCE/SINGLE) (TOTAL)
     Route: 048
     Dates: start: 20180802, end: 20180802
  5. BISOPROLOL FUMARATE. [Suspect]
     Active Substance: BISOPROLOL FUMARATE
     Dosage: 75 MG, SINGLE (75 MG ONCE/SINGLE) (TOTAL)
     Route: 048
     Dates: start: 20180802, end: 20180802
  6. SERTRALINE HCL [Suspect]
     Active Substance: SERTRALINE HYDROCHLORIDE
     Dosage: 150 MG, SINGLE (150 MG ONCE/SINGLE) (TOTAL)
     Route: 048
     Dates: start: 20180802, end: 20180802

REACTIONS (3)
  - Suicide attempt [Unknown]
  - Intentional overdose [Unknown]
  - Hypotension [Unknown]

NARRATIVE: CASE EVENT DATE: 20180802
